FAERS Safety Report 9159984 (Version 2)
Quarter: 2013Q1

REPORT INFORMATION
  Report Type: Spontaneous
  Country: AU (occurrence: AU)
  Receive Date: 20130313
  Receipt Date: 20130318
  Transmission Date: 20140127
  Serious: Yes (Congenital Anomaly, Other)
  Sender: FDA-Public Use
  Company Number: 2013SP002901

PATIENT
  Sex: Male
  Weight: 2.65 kg

DRUGS (12)
  1. FLUCONAZOLE [Suspect]
     Route: 064
     Dates: start: 2005
  2. CEFTRIAXONE SODIUM [Suspect]
     Route: 064
     Dates: start: 2005
  3. AMOXICILLIN [Suspect]
     Route: 064
     Dates: start: 2005
  4. MEROPENEM [Suspect]
     Route: 064
     Dates: start: 2005
  5. ENOXAPARIN [Suspect]
     Route: 064
     Dates: start: 2005
  6. ENOXAPARIN [Suspect]
  7. CEFALEXIN [Suspect]
     Route: 064
     Dates: start: 2005
  8. AMPICILLIN [Suspect]
     Route: 064
     Dates: start: 2005
  9. HEPARIN  SODIUM [Suspect]
     Route: 064
     Dates: start: 2005
  10. GENTAMICIN [Suspect]
     Route: 064
     Dates: start: 2005
  11. PARACETAMOL [Suspect]
     Route: 064
     Dates: start: 2005
  12. RANITIDINE [Suspect]
     Route: 064
     Dates: start: 2005

REACTIONS (7)
  - Foetal exposure during pregnancy [Unknown]
  - Premature baby [Unknown]
  - Congenital multiplex arthrogryposis [Unknown]
  - Talipes [Unknown]
  - Cerebral palsy [Unknown]
  - Conductive deafness [Unknown]
  - Otitis media [Unknown]
